FAERS Safety Report 9496735 (Version 1)
Quarter: 2013Q3

REPORT INFORMATION
  Report Type: Report from Study
  Country: US (occurrence: US)
  Receive Date: 20130904
  Receipt Date: 20130904
  Transmission Date: 20140515
  Serious: Yes (Hospitalization)
  Sender: FDA-Public Use
  Company Number: US-CELGENEUS-163-50794-13083291

PATIENT
  Age: 72 Year
  Sex: Male
  Weight: 91.6 kg

DRUGS (2)
  1. VIDAZA [Suspect]
     Indication: ACUTE MYELOID LEUKAEMIA
     Dosage: 2.14 MILLIGRAM
     Route: 041
     Dates: start: 20130715, end: 20130721
  2. MIDOSTAURIN [Suspect]
     Indication: ACUTE MYELOID LEUKAEMIA
     Route: 048
     Dates: start: 20130722, end: 20130728

REACTIONS (5)
  - Syncope [Unknown]
  - Fracture [Unknown]
  - Urinary retention [Unknown]
  - Blood creatinine increased [Unknown]
  - Hypotension [Unknown]
